FAERS Safety Report 7972721-5 (Version None)
Quarter: 2011Q4

REPORT INFORMATION
  Report Type: 
  Country: None (occurrence: None)
  Receive Date: 20111213
  Receipt Date: 20111202
  Transmission Date: 20120403
  Serious: Yes (Life-Threatening, Hospitalization)
  Sender: FDA-Public Use
  Company Number: KR-GENZYME-POMP-1001847

PATIENT
  Sex: Male
  Weight: 10.2 kg

DRUGS (1)
  1. MYOZYME [Suspect]
     Indication: GLYCOGEN STORAGE DISEASE TYPE II
     Dosage: 19.6 MG/KG, Q2W
     Route: 042
     Dates: start: 20110308

REACTIONS (2)
  - HYPERSENSITIVITY [None]
  - RESPIRATORY DISORDER [None]
